FAERS Safety Report 9861049 (Version 1)
Quarter: 2014Q1

REPORT INFORMATION
  Report Type: Spontaneous
  Country: US (occurrence: US)
  Receive Date: 20140202
  Receipt Date: 20140202
  Transmission Date: 20141002
  Serious: No
  Sender: FDA-Public Use
  Company Number: US-ALLERGAN-1303299US

PATIENT
  Sex: Female

DRUGS (2)
  1. BOTOX COSMETIC [Suspect]
     Indication: SKIN WRINKLING
     Dosage: 44 UNITS, SINGLE
     Route: 030
     Dates: start: 20130214, end: 20130214
  2. BOTOX COSMETIC [Suspect]
     Indication: SKIN WRINKLING

REACTIONS (3)
  - Wrong technique in drug usage process [Unknown]
  - Injection site swelling [Recovered/Resolved]
  - Therapeutic response decreased [Unknown]
